FAERS Safety Report 15819716 (Version 2)
Quarter: 2019Q1

REPORT INFORMATION
  Report Type: Report from Study
  Country: DE (occurrence: DE)
  Receive Date: 20190114
  Receipt Date: 20190117
  Transmission Date: 20190417
  Serious: Yes (Hospitalization)
  Sender: FDA-Public Use
  Company Number: DE-BRISTOL-MYERS SQUIBB COMPANY-BMS-2019-001889

PATIENT
  Age: 47 Year
  Sex: Female
  Weight: 61 kg

DRUGS (10)
  1. OXALIPLATIN. [Suspect]
     Active Substance: OXALIPLATIN
     Indication: OESOPHAGEAL ADENOCARCINOMA
     Route: 065
  2. LEUCOVORIN CALCIUM. [Suspect]
     Active Substance: LEUCOVORIN CALCIUM
     Indication: OESOPHAGEAL ADENOCARCINOMA
     Route: 065
  3. NIVOLUMAB [Suspect]
     Active Substance: NIVOLUMAB
     Indication: ADENOCARCINOMA GASTRIC
     Dosage: 240 MG, UNK
     Route: 065
     Dates: start: 20181206
  4. NIVOLUMAB [Suspect]
     Active Substance: NIVOLUMAB
     Indication: OESOPHAGEAL ADENOCARCINOMA
     Route: 065
  5. FLUOROURACIL. [Suspect]
     Active Substance: FLUOROURACIL
     Indication: OESOPHAGEAL ADENOCARCINOMA
     Route: 065
  6. OXALIPLATIN. [Suspect]
     Active Substance: OXALIPLATIN
     Indication: ADENOCARCINOMA GASTRIC
     Dosage: 142.5 MG, UNK
     Route: 065
  7. IPILIMUMAB [Suspect]
     Active Substance: IPILIMUMAB
     Indication: ADENOCARCINOMA GASTRIC
     Dosage: 61 MG, UNK
     Route: 065
     Dates: start: 20181206
  8. FLUOROURACIL. [Suspect]
     Active Substance: FLUOROURACIL
     Indication: ADENOCARCINOMA GASTRIC
     Dosage: 1 DF, UNK
     Route: 065
  9. LEUCOVORIN CALCIUM. [Suspect]
     Active Substance: LEUCOVORIN CALCIUM
     Indication: ADENOCARCINOMA GASTRIC
     Dosage: 55 MG, UNK
     Route: 065
  10. IPILIMUMAB [Suspect]
     Active Substance: IPILIMUMAB
     Indication: OESOPHAGEAL ADENOCARCINOMA
     Route: 065

REACTIONS (1)
  - Infection [Recovered/Resolved]
